FAERS Safety Report 25083041 (Version 1)
Quarter: 2025Q1

REPORT INFORMATION
  Report Type: Spontaneous
  Country: US (occurrence: US)
  Receive Date: 20250317
  Receipt Date: 20250317
  Transmission Date: 20250409
  Serious: Yes (Other)
  Sender: SANOFI AVENTIS
  Company Number: US-DialogSolutions-SAAVPROD-PI739993-C2

PATIENT
  Age: 5 Year
  Sex: Female

DRUGS (3)
  1. ANTI-THYMOCYTE GLOBULIN (RABBIT) NOS [Suspect]
     Active Substance: LAPINE T-LYMPHOCYTE IMMUNE GLOBULIN
     Indication: Allogenic stem cell transplantation
     Route: 040
  2. FLUDARABINE PHOSPHATE [Suspect]
     Active Substance: FLUDARABINE PHOSPHATE
     Indication: Allogenic stem cell transplantation
     Route: 042
  3. BUSULFAN [Suspect]
     Active Substance: BUSULFAN
     Indication: Allogenic stem cell transplantation
     Route: 042

REACTIONS (7)
  - Chronic graft versus host disease in skin [Unknown]
  - Pneumonia bacterial [Unknown]
  - Epstein-Barr virus associated lymphoproliferative disorder [Unknown]
  - Pneumonia respiratory syncytial viral [Unknown]
  - Candida infection [Unknown]
  - Varicella zoster virus infection [Unknown]
  - Off label use [Unknown]
